FAERS Safety Report 15682568 (Version 1)
Quarter: 2018Q4

REPORT INFORMATION
  Report Type: Spontaneous
  Country: US (occurrence: US)
  Receive Date: 20181203
  Receipt Date: 20181203
  Transmission Date: 20190205
  Serious: No
  Sender: FDA-Public Use
  Company Number: US-AKRON, INC.-2059582

PATIENT
  Sex: Female

DRUGS (1)
  1. OLOPATADINE HCL OPHTHALMIC SOLUTION [Suspect]
     Active Substance: OLOPATADINE HYDROCHLORIDE
     Route: 047

REACTIONS (3)
  - Coating in mouth [Unknown]
  - Dysgeusia [Unknown]
  - Tongue coated [Unknown]
